FAERS Safety Report 15866458 (Version 1)
Quarter: 2019Q1

REPORT INFORMATION
  Report Type: Spontaneous
  Country: US (occurrence: US)
  Receive Date: 20190101
  Receipt Date: 20190101
  Transmission Date: 20190417
  Serious: No
  Sender: FDA-Public Use
  Company Number: None

PATIENT
  Age: 54 Year
  Sex: Female

DRUGS (1)
  1. KISQALI [Suspect]
     Active Substance: RIBOCICLIB
     Route: 048
     Dates: start: 201811

REACTIONS (4)
  - Dyspepsia [None]
  - Myalgia [None]
  - Gastrooesophageal reflux disease [None]
  - Fatigue [None]

NARRATIVE: CASE EVENT DATE: 20190101
